FAERS Safety Report 6297003-1 (Version None)
Quarter: 2009Q3

REPORT INFORMATION
  Report Type: 
  Country: None (occurrence: None)
  Receive Date: 20090804
  Receipt Date: 20090723
  Transmission Date: 20100115
  Serious: Yes (Hospitalization)
  Sender: FDA-Public Use
  Company Number: AU-WYE-G04173309

PATIENT
  Age: 77 Year
  Sex: Female

DRUGS (5)
  1. LANSOPRAZOLE [Suspect]
     Dosage: UNKNOWN
  2. PANTOPRAZOLE SODIUM [Suspect]
     Dosage: UNKNOWN
  3. NICORANDIL [Suspect]
     Dosage: UNKNOWN
     Route: 048
  4. CAPECITABINE [Suspect]
     Dosage: UNKNOWN
     Dates: start: 20080930
  5. ENOXAPARIN SODIUM [Suspect]
     Dosage: UNKNOWN
     Route: 058

REACTIONS (2)
  - CIRCULATORY COLLAPSE [None]
  - VENOUS THROMBOSIS [None]
